FAERS Safety Report 25101554 (Version 1)
Quarter: 2025Q1

REPORT INFORMATION
  Report Type: Spontaneous
  Country: CN (occurrence: CN)
  Receive Date: 20250320
  Receipt Date: 20250320
  Transmission Date: 20250408
  Serious: Yes (Life-Threatening)
  Sender: Kenvue
  Company Number: CN-KENVUE-20250304990

PATIENT

DRUGS (2)
  1. CHILDRENS MOTRIN [Suspect]
     Active Substance: IBUPROFEN
     Indication: Pyrexia
     Dosage: 15 MILLILITER, ONCE A DAY
     Route: 048
     Dates: start: 20250301, end: 20250301
  2. CHILDRENS MOTRIN [Suspect]
     Active Substance: IBUPROFEN
     Indication: Analgesic therapy

REACTIONS (3)
  - Eyelid oedema [Recovering/Resolving]
  - Hyperhidrosis [Recovering/Resolving]
  - Product administered to patient of inappropriate age [Unknown]

NARRATIVE: CASE EVENT DATE: 20250301
